FAERS Safety Report 14467512 (Version 1)
Quarter: 2018Q1

REPORT INFORMATION
  Report Type: Report from Study
  Country: None (occurrence: CA)
  Receive Date: 20180131
  Receipt Date: 20180131
  Transmission Date: 20180509
  Serious: Yes (Other)
  Sender: FDA-Public Use
  Company Number: CA-ABBVIE-18S-028-2239116-00

PATIENT
  Age: 27 Year
  Sex: Female
  Weight: 65.83 kg

DRUGS (2)
  1. LUPRON DEPOT [Suspect]
     Active Substance: LEUPROLIDE ACETATE
     Indication: ENDOMETRIOSIS
     Route: 030
     Dates: start: 20150301
  2. LUPRON DEPOT [Suspect]
     Active Substance: LEUPROLIDE ACETATE
     Route: 030
     Dates: start: 20171229

REACTIONS (5)
  - Abdominal distension [Recovering/Resolving]
  - Post procedural contusion [Recovering/Resolving]
  - Abdominal adhesions [Recovering/Resolving]
  - Abdominal pain [Recovering/Resolving]
  - Quality of life decreased [Recovering/Resolving]

NARRATIVE: CASE EVENT DATE: 20180125
